FAERS Safety Report 21555757 (Version 2)
Quarter: 2022Q4

REPORT INFORMATION
  Report Type: Spontaneous
  Country: QA (occurrence: QA)
  Receive Date: 20221104
  Receipt Date: 20221117
  Transmission Date: 20230112
  Serious: Yes (Other)
  Sender: FDA-Public Use
  Company Number: QA-ELI_LILLY_AND_COMPANY-QA202210012287

PATIENT
  Age: 68 Year
  Sex: Male
  Weight: 82 kg

DRUGS (5)
  1. INSULIN GLARGINE [Suspect]
     Active Substance: INSULIN GLARGINE
     Indication: Product used for unknown indication
     Dosage: 30 U, EACH EVENING (AT BED TIME)
     Route: 065
  2. INSULIN GLARGINE [Suspect]
     Active Substance: INSULIN GLARGINE
     Dosage: 30 U, EACH EVENING (AT BED TIME)
     Route: 065
  3. INSULIN ASPART [Suspect]
     Active Substance: INSULIN ASPART
     Indication: Type 2 diabetes mellitus
     Dosage: 30 U, TID
     Route: 065
  4. DULAGLUTIDE [Concomitant]
     Active Substance: DULAGLUTIDE
     Indication: Type 2 diabetes mellitus
     Dosage: 1.5 MG, WEEKLY (1/W)
  5. METFORMIN [Concomitant]
     Active Substance: METFORMIN HYDROCHLORIDE
     Indication: Type 2 diabetes mellitus
     Dosage: 1 G, DAILY
     Route: 048

REACTIONS (5)
  - Loss of consciousness [Unknown]
  - Hypoglycaemia unawareness [Unknown]
  - Renal tubular acidosis [Unknown]
  - Glycosylated haemoglobin increased [Unknown]
  - Hypoglycaemia [Recovered/Resolved]
